FAERS Safety Report 9163159 (Version 1)
Quarter: 2013Q1

REPORT INFORMATION
  Report Type: Spontaneous
  Country: JP (occurrence: None)
  Receive Date: 20130227
  Receipt Date: 20130227
  Transmission Date: 20140127
  Serious: Yes (Other)
  Sender: FDA-Public Use
  Company Number: 2013-000503

PATIENT
  Sex: 0

DRUGS (2)
  1. BENET [Suspect]
     Dosage: UNKNOWN, ORAL
     Route: 048
  2. FORTEO (TERIPARATIDE) [Suspect]
     Dosage: UNKNOWN

REACTIONS (1)
  - Chronic myeloid leukaemia [None]
